APPROVED DRUG PRODUCT: DIAL
Active Ingredient: HEXACHLOROPHENE
Strength: 0.25%
Dosage Form/Route: SOLUTION;TOPICAL
Application: N017421 | Product #002
Applicant: DIAL CORP DIV GREYHOUND CO
Approved: Approved Prior to Jan 1, 1982 | RLD: No | RS: No | Type: DISCN